FAERS Safety Report 8044507-7 (Version None)
Quarter: 2012Q1

REPORT INFORMATION
  Report Type: 
  Country: None (occurrence: None)
  Receive Date: 20120113
  Receipt Date: 20120103
  Transmission Date: 20120608
  Serious: Yes (Hospitalization)
  Sender: FDA-Public Use
  Company Number: US-JNJFOC-20110910271

PATIENT
  Sex: Male
  Weight: 52 kg

DRUGS (10)
  1. REMICADE [Suspect]
     Indication: CROHN'S DISEASE
     Dosage: COMPLETED LOADING DOSES TIMES 3
     Route: 042
     Dates: start: 20110729
  2. MERCAPTOPURINE [Concomitant]
  3. VITAMIN D [Concomitant]
  4. REMICADE [Suspect]
     Route: 042
     Dates: start: 20110909
  5. MULTI-VITAMINS [Concomitant]
  6. MESALAMINE [Concomitant]
     Route: 048
  7. CALCIUM [Concomitant]
  8. IRON DEXTRAN [Concomitant]
  9. PROBIOTICS [Concomitant]
  10. FERROUS SULFATE TAB [Concomitant]

REACTIONS (2)
  - SMALL INTESTINAL STENOSIS [None]
  - ILEAL FISTULA [None]
